FAERS Safety Report 8809410 (Version 1)
Quarter: 2012Q4

REPORT INFORMATION
  Report Type: 
  Country: US (occurrence: US)
  Receive Date: 20120926
  Receipt Date: 20120926
  Transmission Date: 20130627
  Serious: Yes (Death)
  Sender: FDA-Public Use
  Company Number: US-ROCHE-1104237

PATIENT
  Sex: Male

DRUGS (1)
  1. AVASTIN [Suspect]
     Indication: SMALL INTESTINE CARCINOMA
     Route: 065

REACTIONS (2)
  - Death [Fatal]
  - Carcinoid syndrome [Unknown]
